FAERS Safety Report 14435903 (Version 1)
Quarter: 2018Q1

REPORT INFORMATION
  Report Type: Spontaneous
  Country: PL (occurrence: PL)
  Receive Date: 20180125
  Receipt Date: 20180125
  Transmission Date: 20180509
  Serious: Yes (Other)
  Sender: FDA-Public Use
  Company Number: PL-ASTRAZENECA-2018SE07805

PATIENT
  Sex: Female

DRUGS (1)
  1. LYNPARZA [Suspect]
     Active Substance: OLAPARIB
     Dosage: UNKNOWN
     Route: 048

REACTIONS (1)
  - Disease progression [Unknown]

NARRATIVE: CASE EVENT DATE: 20180103
